FAERS Safety Report 6213684-2 (Version None)
Quarter: 2009Q2

REPORT INFORMATION
  Report Type: 
  Country: None (occurrence: None)
  Receive Date: 20090601
  Receipt Date: 20090522
  Transmission Date: 20091009
  Serious: Yes (Disabling)
  Sender: FDA-Public Use
  Company Number: 2009005993

PATIENT
  Age: 71 Year
  Sex: Male
  Weight: 109 kg

DRUGS (12)
  1. MODAFINIL [Suspect]
     Dosage: TO BE GRADUALLY INCREASED EVERY 10-DAYS (50 MG, 1 IN 1 D), ORAL
     Route: 048
     Dates: start: 20090417, end: 20090501
  2. MODAFINIL [Suspect]
     Dosage: TO BE GRADUALLY INCREASED EVERY 10-DAYS (50 MG, 1 IN 1 D), ORAL
     Route: 048
     Dates: start: 20090318
  3. ALLOPURINOL [Concomitant]
  4. ATORVASTATIN CALCIUM [Concomitant]
  5. INSULIN [Concomitant]
  6. DOCUSATE SODIUM [Concomitant]
  7. LACTULOSE [Concomitant]
  8. SENOKOT (SENNA ALEXANDRINA) [Concomitant]
  9. LAMOTRIGINE [Concomitant]
  10. OMEPRAZOLE [Concomitant]
  11. SEROQUEL [Concomitant]
  12. COUMADIN [Concomitant]

REACTIONS (4)
  - CONSTIPATION [None]
  - DYSKINESIA [None]
  - RENAL FUNCTION TEST ABNORMAL [None]
  - URINARY RETENTION [None]
